FAERS Safety Report 9698352 (Version 1)
Quarter: 2013Q4

REPORT INFORMATION
  Report Type: Spontaneous
  Country: US (occurrence: US)
  Receive Date: 20131120
  Receipt Date: 20131120
  Transmission Date: 20140711
  Serious: Yes (Other)
  Sender: FDA-Public Use
  Company Number: US-MALLINCKRODT-T201304182

PATIENT
  Age: 50 Year
  Sex: Female

DRUGS (1)
  1. GABLOFEN [Suspect]
     Indication: MUSCLE SPASTICITY
     Dosage: 66 MCG/DAY
     Route: 037
     Dates: start: 20130611

REACTIONS (3)
  - Device failure [Unknown]
  - Drug withdrawal syndrome [Unknown]
  - Muscle spasticity [Unknown]
